FAERS Safety Report 16206089 (Version 1)
Quarter: 2019Q2

REPORT INFORMATION
  Report Type: Spontaneous
  Country: FR (occurrence: FR)
  Receive Date: 20190417
  Receipt Date: 20190417
  Transmission Date: 20190711
  Serious: Yes (Other)
  Sender: FDA-Public Use
  Company Number: FR-GLAXOSMITHKLINE-FR2019067933

PATIENT
  Age: 73 Year
  Sex: Male

DRUGS (3)
  1. DIANTALVIC [Concomitant]
     Active Substance: ACETAMINOPHEN\PROPOXYPHENE
     Indication: CAUDA EQUINA SYNDROME
     Dosage: UNK
     Route: 048
     Dates: start: 2014
  2. VOLTAREN [Suspect]
     Active Substance: DICLOFENAC SODIUM
     Indication: CAUDA EQUINA SYNDROME
     Dosage: 75 MG, QD
     Route: 048
     Dates: start: 1995, end: 201903
  3. SKENAN [Suspect]
     Active Substance: MORPHINE SULFATE
     Indication: CAUDA EQUINA SYNDROME
     Dosage: UNK
     Route: 048
     Dates: start: 2014, end: 2018

REACTIONS (5)
  - Rash pustular [Recovered/Resolved]
  - Insomnia [Recovered/Resolved]
  - Skin exfoliation [Recovered/Resolved]
  - Intestinal haemorrhage [Recovered/Resolved]
  - Balance disorder [Recovered/Resolved]
